FAERS Safety Report 7080518-6 (Version None)
Quarter: 2010Q4

REPORT INFORMATION
  Report Type: 
  Country: None (occurrence: None)
  Receive Date: 20101025
  Receipt Date: 20101007
  Transmission Date: 20110411
  Serious: Yes (Hospitalization, Other)
  Sender: FDA-Public Use
  Company Number: DSA_44063_2010

PATIENT
  Age: 78 Year
  Sex: Female

DRUGS (2)
  1. ATIVAN [Suspect]
     Indication: PRODUCT USED FOR UNKNOWN INDICATION
     Dosage: (DF)
  2. LORAZEPAM [Suspect]
     Indication: PRODUCT USED FOR UNKNOWN INDICATION
     Dosage: (DF)

REACTIONS (4)
  - CARDIAC OPERATION [None]
  - MALAISE [None]
  - PANIC ATTACK [None]
  - PRODUCT SUBSTITUTION ISSUE [None]
